FAERS Safety Report 18883028 (Version 1)
Quarter: 2021Q1

REPORT INFORMATION
  Report Type: Report from Study
  Country: US (occurrence: US)
  Receive Date: 20210212
  Receipt Date: 20210212
  Transmission Date: 20210420
  Serious: Yes (Life-Threatening, Other)
  Sender: FDA-Public Use
  Company Number: US-AUROBINDO-AUR-APL-2021-006086

PATIENT

DRUGS (1)
  1. MELPHALAN INJECTION [Suspect]
     Active Substance: MELPHALAN
     Indication: RETINOBLASTOMA
     Dosage: 30 MICROGRAM

REACTIONS (4)
  - Retinal degeneration [Unknown]
  - Product use in unapproved indication [Unknown]
  - Retinal toxicity [Unknown]
  - Product use issue [Unknown]
